FAERS Safety Report 8794985 (Version 1)
Quarter: 2012Q4

REPORT INFORMATION
  Report Type: 
  Country: GB (occurrence: GB)
  Receive Date: 20120917
  Receipt Date: 20120917
  Transmission Date: 20130627
  Serious: Yes (Other)
  Sender: FDA-Public Use
  Company Number: GB-ABBOTT-12P-167-0980133-00

PATIENT
  Age: 83 Year
  Sex: Female

DRUGS (14)
  1. EPILIM [Suspect]
     Indication: GRAND MAL CONVULSION
     Dates: start: 20120819, end: 20120821
  2. OMEPRAZOLE [Suspect]
     Indication: PRODUCT USED FOR UNKNOWN INDICATION
     Dosage: Daily
     Dates: end: 20120821
  3. PHENYTOIN [Suspect]
     Indication: GRAND MAL CONVULSION
     Dosage: Once
     Dates: start: 20120818, end: 20120818
  4. AMOXICILLIN\CLAVULANATE POTASSIUM [Suspect]
     Indication: URINARY TRACT INFECTION
     Dates: start: 20120818, end: 20120819
  5. AMOXICILLIN\CLAVULANATE POTASSIUM [Suspect]
     Dates: start: 20120820, end: 20120821
  6. GENTICIN [Suspect]
     Indication: URINARY TRACT INFECTION
     Dosage: Once
     Dates: start: 20120818, end: 20120818
  7. MEPIXANOX [Concomitant]
     Indication: PRODUCT USED FOR UNKNOWN INDICATION
  8. CALCEOS [Concomitant]
     Indication: PRODUCT USED FOR UNKNOWN INDICATION
  9. BUPRENORPHINE [Concomitant]
     Indication: PRODUCT USED FOR UNKNOWN INDICATION
  10. TRIMETHOPRIM [Concomitant]
     Indication: PRODUCT USED FOR UNKNOWN INDICATION
  11. MOVICOL [Concomitant]
     Indication: PRODUCT USED FOR UNKNOWN INDICATION
     Dates: end: 20120818
  12. PARACETAMOL [Concomitant]
     Indication: PRODUCT USED FOR UNKNOWN INDICATION
  13. SENNA [Concomitant]
     Indication: PRODUCT USED FOR UNKNOWN INDICATION
     Dates: end: 20120818
  14. STRONTIUM [Concomitant]
     Indication: PRODUCT USED FOR UNKNOWN INDICATION
     Dates: end: 20120818

REACTIONS (1)
  - Blood creatine phosphokinase increased [Unknown]
